FAERS Safety Report 12336460 (Version 3)
Quarter: 2016Q2

REPORT INFORMATION
  Report Type: Spontaneous
  Country: US (occurrence: US)
  Receive Date: 20160505
  Receipt Date: 20160627
  Transmission Date: 20160815
  Serious: Yes (Hospitalization)
  Sender: FDA-Public Use
  Company Number: US-JNJFOC-20160501738

PATIENT
  Sex: Male
  Weight: 81.65 kg

DRUGS (2)
  1. DURAGESIC [Suspect]
     Active Substance: FENTANYL
     Indication: PAIN
     Route: 062
     Dates: start: 2007
  2. DURAGESIC [Suspect]
     Active Substance: FENTANYL
     Indication: PAIN
     Route: 062

REACTIONS (11)
  - Paranoia [Unknown]
  - Dyspnoea [Unknown]
  - Intentional product misuse [Recovering/Resolving]
  - Drug dependence [Unknown]
  - Product quality issue [Unknown]
  - Antisocial behaviour [Unknown]
  - Abnormal behaviour [Unknown]
  - Weight decreased [Unknown]
  - Hyperhidrosis [Unknown]
  - Euphoric mood [Unknown]
  - Incorrect drug administration duration [Unknown]
